FAERS Safety Report 6310783-1 (Version None)
Quarter: 2009Q3

REPORT INFORMATION
  Report Type: 
  Country: None (occurrence: None)
  Receive Date: 20090812
  Receipt Date: 20090728
  Transmission Date: 20100115
  Serious: Yes (Other)
  Sender: FDA-Public Use
  Company Number: AUR-APL-2009-00342

PATIENT
  Sex: Female

DRUGS (7)
  1. GABAPENTIN [Suspect]
     Indication: TRIGEMINAL NEURALGIA
  2. MIRTAZAPINE [Suspect]
     Indication: BIPOLAR DISORDER
  3. CITALOPRAM HYDROBROMIDE [Suspect]
     Indication: BIPOLAR DISORDER
  4. TOPIRAMATE [Suspect]
     Indication: TRIGEMINAL NEURALGIA
  5. ZIPRASIDONE HCL [Suspect]
     Indication: BIPOLAR DISORDER
  6. METHADONE HCL [Suspect]
     Indication: TRIGEMINAL NEURALGIA
  7. THYROID SUPPLEMENTS [Suspect]
     Indication: BIPOLAR DISORDER

REACTIONS (7)
  - ATAXIA [None]
  - BEHCET'S SYNDROME [None]
  - DISEASE PROGRESSION [None]
  - MEMORY IMPAIRMENT [None]
  - MYOCLONUS [None]
  - TARDIVE DYSKINESIA [None]
  - TREMOR [None]
